FAERS Safety Report 21084842 (Version 2)
Quarter: 2022Q3

REPORT INFORMATION
  Report Type: Spontaneous
  Country: US (occurrence: US)
  Receive Date: 20220714
  Receipt Date: 20220729
  Transmission Date: 20221026
  Serious: Yes (Death, Hospitalization)
  Sender: FDA-Public Use
  Company Number: US-TEVA-2022-US-2053825

PATIENT
  Age: 29 Year
  Sex: Male

DRUGS (5)
  1. HYDROMORPHONE [Suspect]
     Active Substance: HYDROMORPHONE
     Indication: Amputation stump pain
     Route: 042
  2. NALOXONE [Suspect]
     Active Substance: NALOXONE
     Indication: Respiratory depression
     Route: 065
  3. EPINEPHRINE [Suspect]
     Active Substance: EPINEPHRINE
     Indication: Respiratory depression
     Route: 065
  4. DEXTROSE [Suspect]
     Active Substance: DEXTROSE
     Indication: Respiratory depression
     Route: 065
  5. CALCIUM [Suspect]
     Active Substance: CALCIUM
     Indication: Respiratory depression
     Route: 065

REACTIONS (5)
  - Respiratory depression [Fatal]
  - Unresponsive to stimuli [Fatal]
  - Pulse absent [Fatal]
  - Drug ineffective [Fatal]
  - Cardiac arrest [Fatal]
